FAERS Safety Report 8178116-6 (Version None)
Quarter: 2012Q1

REPORT INFORMATION
  Report Type: 
  Country: None (occurrence: None)
  Receive Date: 20120301
  Receipt Date: 20120228
  Transmission Date: 20120608
  Serious: Yes (Hospitalization)
  Sender: FDA-Public Use
  Company Number: FR-AMGEN-FRASP2012012742

PATIENT
  Age: 78 Year
  Sex: Male

DRUGS (4)
  1. EPOGEN [Concomitant]
     Dosage: 1.27 U/L, UNK
  2. NPLATE [Suspect]
     Indication: IDIOPATHIC THROMBOCYTOPENIC PURPURA
     Dosage: 3 MUG/KG, UNK
     Route: 058
     Dates: start: 20110628
  3. FOLIC ACID [Concomitant]
  4. VITAMIN B12                        /00056201/ [Concomitant]
     Dosage: 163 NG/L, UNK

REACTIONS (1)
  - POLYCYTHAEMIA [None]
